APPROVED DRUG PRODUCT: ESOMEPRAZOLE MAGNESIUM
Active Ingredient: ESOMEPRAZOLE MAGNESIUM
Strength: EQ 20MG BASE
Dosage Form/Route: TABLET, DELAYED RELEASE;ORAL
Application: A209202 | Product #001
Applicant: P AND L DEVELOPMENT LLC
Approved: Mar 5, 2019 | RLD: No | RS: No | Type: DISCN